FAERS Safety Report 22952755 (Version 2)
Quarter: 2023Q4

REPORT INFORMATION
  Report Type: Spontaneous
  Country: US (occurrence: US)
  Receive Date: 20230918
  Receipt Date: 20231016
  Transmission Date: 20240109
  Serious: Yes (Hospitalization)
  Sender: FDA-Public Use
  Company Number: US-ELI_LILLY_AND_COMPANY-US202309008371

PATIENT
  Age: 78 Year
  Sex: Male
  Weight: 88.889 kg

DRUGS (5)
  1. BAQSIMI [Suspect]
     Active Substance: GLUCAGON
     Indication: Hypoglycaemia
     Dosage: 3 MG, UNKNOWN
     Route: 045
  2. BAQSIMI [Suspect]
     Active Substance: GLUCAGON
     Indication: Hypoglycaemia
     Dosage: 3 MG, UNKNOWN
     Route: 045
  3. BAQSIMI [Suspect]
     Active Substance: GLUCAGON
     Dosage: 3 MG, UNKNOWN
     Route: 045
  4. BAQSIMI [Suspect]
     Active Substance: GLUCAGON
     Dosage: 3 MG, UNKNOWN
     Route: 045
  5. INSULIN NOS [Concomitant]
     Active Substance: INSULIN NOS
     Indication: Product used for unknown indication

REACTIONS (2)
  - Hypoglycaemic unconsciousness [Recovered/Resolved]
  - Drug ineffective [Recovered/Resolved]

NARRATIVE: CASE EVENT DATE: 20230911
